FAERS Safety Report 18595064 (Version 3)
Quarter: 2020Q4

REPORT INFORMATION
  Report Type: Spontaneous
  Country: US (occurrence: US)
  Receive Date: 20201209
  Receipt Date: 20201221
  Transmission Date: 20210114
  Serious: Yes (Life-Threatening)
  Sender: FDA-Public Use
  Company Number: US-UCBSA-2020041651

PATIENT
  Age: 8 Year
  Sex: Male

DRUGS (2)
  1. NAYZILAM [Suspect]
     Active Substance: MIDAZOLAM
     Indication: SEIZURE
     Dosage: 5 MILLIGRAM PER MILLILITRE
     Dates: start: 20201010
  2. TOPAMAX [Concomitant]
     Active Substance: TOPIRAMATE
     Indication: PRODUCT USED FOR UNKNOWN INDICATION

REACTIONS (5)
  - Seizure [Unknown]
  - Device malfunction [Unknown]
  - Expired product administered [Unknown]
  - Liquid product physical issue [Unknown]
  - Status epilepticus [Unknown]

NARRATIVE: CASE EVENT DATE: 20201010
